FAERS Safety Report 6687976-7 (Version None)
Quarter: 2010Q2

REPORT INFORMATION
  Report Type: 
  Country: None (occurrence: None)
  Receive Date: 20100420
  Receipt Date: 20100413
  Transmission Date: 20101027
  Serious: Yes (Other)
  Sender: FDA-Public Use
  Company Number: CHPA2010US06680

PATIENT
  Age: 67 Year
  Sex: Female
  Weight: 81.633 kg

DRUGS (1)
  1. BENEFIBER STICK PACKS [Suspect]
     Indication: NUTRITIONAL SUPPORT
     Dosage: 2-3 D/F, QD
     Route: 048

REACTIONS (2)
  - ARTHRALGIA [None]
  - BLOOD PRESSURE INCREASED [None]
